FAERS Safety Report 11482287 (Version 2)
Quarter: 2015Q3

REPORT INFORMATION
  Report Type: Spontaneous
  Country: US (occurrence: US)
  Receive Date: 20150903
  Receipt Date: 20150903
  Transmission Date: 20151125
  Serious: No
  Sender: FDA-Public Use
  Company Number: US-ELI_LILLY_AND_COMPANY-US201204001674

PATIENT
  Sex: Female

DRUGS (2)
  1. CYMBALTA [Suspect]
     Active Substance: DULOXETINE HYDROCHLORIDE
     Indication: DEPRESSION
     Dosage: 30 MG, UNKNOWN
  2. CYMBALTA [Suspect]
     Active Substance: DULOXETINE HYDROCHLORIDE
     Dosage: 60 MG, UNKNOWN
     Dates: end: 20120326

REACTIONS (12)
  - Crying [Unknown]
  - Feeling hot [Unknown]
  - Change of bowel habit [Unknown]
  - Diarrhoea [Unknown]
  - Drug withdrawal syndrome [Unknown]
  - Hypoaesthesia oral [Unknown]
  - Dizziness [Unknown]
  - Emotional disorder [Unknown]
  - Paraesthesia [Unknown]
  - Nausea [Unknown]
  - Disorientation [Unknown]
  - Hyperhidrosis [Unknown]
